FAERS Safety Report 8554308-9 (Version None)
Quarter: 2012Q3

REPORT INFORMATION
  Report Type: 
  Country: None (occurrence: None)
  Receive Date: 20120731
  Receipt Date: 20120724
  Transmission Date: 20120928
  Serious: Yes (Other)
  Sender: FDA-Public Use
  Company Number: CA-ROCHE-751749

PATIENT
  Sex: Female
  Weight: 111.23 kg

DRUGS (16)
  1. ABATACEPT [Suspect]
     Indication: PRODUCT USED FOR UNKNOWN INDICATION
     Route: 042
     Dates: start: 20100501, end: 20101101
  2. CARDIZEM [Concomitant]
     Indication: HYPERTENSION
     Route: 048
  3. PANTOPRAZOLE SODIUM [Concomitant]
     Indication: PROPHYLAXIS AGAINST GASTROINTESTINAL ULCER
     Route: 048
  4. CLONAZEPAM [Concomitant]
     Indication: RESTLESS LEGS SYNDROME
  5. LOVAZA [Concomitant]
     Dosage: DRUG REPORTED: OMEGA 3
  6. ACTEMRA [Suspect]
  7. DICLOFENAC SODIUM [Concomitant]
     Indication: RHEUMATOID ARTHRITIS
     Route: 048
  8. CARDIZEM [Concomitant]
     Dosage: DOSAGE INCREASED
     Route: 048
  9. ACTEMRA [Suspect]
     Route: 042
     Dates: start: 20110207, end: 20110207
  10. ACTEMRA [Suspect]
     Route: 042
  11. CARDIZEM [Concomitant]
     Route: 048
  12. ACTEMRA [Suspect]
     Indication: RHEUMATOID ARTHRITIS
     Dosage: FORM: INFUSION
     Route: 042
     Dates: start: 20101208, end: 20101208
  13. AVAPRO [Concomitant]
     Indication: HYPERTENSION
     Route: 048
  14. ARAVA [Concomitant]
  15. ESCITALOPRAM [Concomitant]
  16. CALCIUM [Concomitant]

REACTIONS (5)
  - PAROTID GLAND ENLARGEMENT [None]
  - NASAL CONGESTION [None]
  - PSORIASIS [None]
  - NASOPHARYNGITIS [None]
  - BLOOD PRESSURE INCREASED [None]
